FAERS Safety Report 16527060 (Version 2)
Quarter: 2019Q3

REPORT INFORMATION
  Report Type: Spontaneous
  Country: US (occurrence: US)
  Receive Date: 20190703
  Receipt Date: 20190815
  Transmission Date: 20191004
  Serious: No
  Sender: FDA-Public Use
  Company Number: US-PFIZER INC-2019273501

PATIENT
  Age: 60 Year
  Sex: Male
  Weight: 74.84 kg

DRUGS (5)
  1. FENTANYL CITRATE. [Concomitant]
     Active Substance: FENTANYL CITRATE
     Dosage: 50 UG, UNK
  2. LYRICA [Suspect]
     Active Substance: PREGABALIN
     Indication: ARACHNOIDITIS
     Dosage: 200 MG, 2X/DAY
     Route: 048
     Dates: start: 20190622
  3. OXYCONTIN [Concomitant]
     Active Substance: OXYCODONE HYDROCHLORIDE
     Indication: ARACHNOIDITIS
     Dosage: UNK UNK, 4X/DAY ((OXYCODONE: 10; ACETAMINOPHEN: 325))
  4. FENTANYL CITRATE. [Concomitant]
     Active Substance: FENTANYL CITRATE
     Indication: ARACHNOIDITIS
     Dosage: 25 UG, UNK
  5. FENTANYL CITRATE. [Concomitant]
     Active Substance: FENTANYL CITRATE
     Dosage: 75 UG, UNK (ONE PATCH EVERY 3 DAYS)
     Dates: start: 201904

REACTIONS (3)
  - Drug effective for unapproved indication [Unknown]
  - Off label use [Unknown]
  - Memory impairment [Unknown]
